FAERS Safety Report 21742297 (Version 1)
Quarter: 2022Q4

REPORT INFORMATION
  Report Type: Spontaneous
  Country: PT (occurrence: PT)
  Receive Date: 20221216
  Receipt Date: 20221216
  Transmission Date: 20230112
  Serious: Yes (Hospitalization, Other)
  Sender: FDA-Public Use
  Company Number: PT-EDOL-2022000020

PATIENT
  Age: 74 Year
  Sex: Female

DRUGS (1)
  1. TIMOLOL MALEATE [Suspect]
     Active Substance: TIMOLOL MALEATE
     Indication: Glaucoma
     Dosage: OCULAR USE
     Route: 050

REACTIONS (3)
  - Sinus node dysfunction [Unknown]
  - Condition aggravated [Unknown]
  - Sinoatrial block [Unknown]
